FAERS Safety Report 5373664-6 (Version None)
Quarter: 2007Q2

REPORT INFORMATION
  Report Type: 
  Country: None (occurrence: None)
  Receive Date: 20070615
  Receipt Date: 20060530
  Transmission Date: 20071010
  Serious: Yes (Other)
  Sender: FDA-Public Use
  Company Number: 200518857US

PATIENT
  Sex: Male

DRUGS (13)
  1. LANTUS [Suspect]
     Indication: DIABETES MELLITUS NON-INSULIN-DEPENDENT
     Dosage: 40 U INJ
  2. OPTICLIK [Suspect]
     Indication: DIABETES MELLITUS NON-INSULIN-DEPENDENT
  3. NOVOLOG [Concomitant]
  4. ALTACE [Concomitant]
  5. LEVOTHYROXINE SODIUM (THYROXINE) [Concomitant]
  6. ZYBAN [Concomitant]
  7. ASCORBIC ACID (VITAMIN C) [Concomitant]
  8. ASCORBIC ACID, TOCOPHERYL ACETATE, RETINOL, ZINC, CALCIUM, VITAMIN NOS [Concomitant]
  9. AVANDIA [Concomitant]
  10. RANITIDINE HYDROCHLORIDE (ZANTAC) [Concomitant]
  11. TOCOPHERYL ACETATE (VITAMIN E) [Concomitant]
  12. TAMSULOSIN HCL [Concomitant]
  13. ATORVASTATIN CALCIUM (LIPITOR) [Concomitant]

REACTIONS (2)
  - BLOOD GLUCOSE INCREASED [None]
  - HYPOGLYCAEMIA [None]
